FAERS Safety Report 15366940 (Version 14)
Quarter: 2020Q1

REPORT INFORMATION
  Report Type: Report from Study
  Country: CO (occurrence: CO)
  Receive Date: 20180910
  Receipt Date: 20200327
  Transmission Date: 20200409
  Serious: Yes (Hospitalization, Other)
  Sender: FDA-Public Use
  Company Number: CO-ACTELION-A-CH2018-178573

PATIENT
  Age: 36 Year
  Sex: Female
  Weight: 49 kg

DRUGS (8)
  1. OPSUMIT [Suspect]
     Active Substance: MACITENTAN
     Dosage: 10 MG, QD
     Route: 048
     Dates: start: 20200117, end: 20200217
  2. OPSUMIT [Suspect]
     Active Substance: MACITENTAN
     Dosage: 10 MG, QD
     Route: 048
     Dates: start: 20190114, end: 20190308
  3. OPSUMIT [Suspect]
     Active Substance: MACITENTAN
     Dosage: 10 MG, QD
     Route: 048
     Dates: start: 20190814, end: 20190912
  4. OPSUMIT [Suspect]
     Active Substance: MACITENTAN
     Indication: PULMONARY ARTERIAL HYPERTENSION
     Dosage: 10 MG, QD
     Route: 048
     Dates: start: 20171125
  5. OPSUMIT [Suspect]
     Active Substance: MACITENTAN
     Dosage: 10 MG, QD
     Route: 048
     Dates: start: 20181119, end: 20181219
  6. OPSUMIT [Suspect]
     Active Substance: MACITENTAN
     Dosage: 10 MG, QD
     Route: 048
     Dates: start: 20180912, end: 20181110
  7. RIVAROXABAN [Concomitant]
     Active Substance: RIVAROXABAN
  8. OPSUMIT [Suspect]
     Active Substance: MACITENTAN
     Dosage: 10 MG, QD
     Route: 048
     Dates: start: 20190327, end: 20190429

REACTIONS (29)
  - Defaecation urgency [Not Recovered/Not Resolved]
  - General physical health deterioration [Not Recovered/Not Resolved]
  - Chest discomfort [Not Recovered/Not Resolved]
  - Dysphonia [Not Recovered/Not Resolved]
  - Echocardiogram abnormal [Unknown]
  - Chest pain [Not Recovered/Not Resolved]
  - Dyspnoea [Not Recovered/Not Resolved]
  - Feeling abnormal [Recovering/Resolving]
  - Influenza [Not Recovered/Not Resolved]
  - Bone pain [Not Recovered/Not Resolved]
  - Pain [Not Recovered/Not Resolved]
  - Hypoaesthesia [Not Recovered/Not Resolved]
  - Nausea [Not Recovered/Not Resolved]
  - Choking sensation [Not Recovered/Not Resolved]
  - Therapy cessation [Unknown]
  - Vomiting [Recovering/Resolving]
  - Product supply issue [Unknown]
  - Nasopharyngitis [Not Recovered/Not Resolved]
  - Pyrexia [Not Recovered/Not Resolved]
  - Hypotension [Not Recovered/Not Resolved]
  - Pain in extremity [Not Recovered/Not Resolved]
  - Pulmonary mass [Not Recovered/Not Resolved]
  - Productive cough [Recovering/Resolving]
  - Pneumonitis [Recovering/Resolving]
  - Fatigue [Not Recovered/Not Resolved]
  - Pulmonary vascular disorder [Not Recovered/Not Resolved]
  - N-terminal prohormone brain natriuretic peptide increased [Not Recovered/Not Resolved]
  - Sinus arrhythmia [Not Recovered/Not Resolved]
  - Cough [Not Recovered/Not Resolved]

NARRATIVE: CASE EVENT DATE: 201807
